FAERS Safety Report 6855545-1 (Version None)
Quarter: 2010Q3

REPORT INFORMATION
  Report Type: 
  Country: None (occurrence: None)
  Receive Date: 20100719
  Receipt Date: 20100707
  Transmission Date: 20110219
  Serious: Yes (Hospitalization)
  Sender: FDA-Public Use
  Company Number: US-JNJFOC-20100702449

PATIENT
  Sex: Female
  Weight: 72.58 kg

DRUGS (3)
  1. RISPERDAL CONSTA [Suspect]
     Indication: DEPRESSION
     Route: 030
  2. RISPERDAL [Suspect]
     Indication: DEPRESSION
     Route: 048
  3. CLONAZEPAM [Concomitant]
     Indication: ANXIETY
     Route: 048

REACTIONS (27)
  - ABDOMINAL DISTENSION [None]
  - ABDOMINAL PAIN LOWER [None]
  - ADVERSE DRUG REACTION [None]
  - ASTHENIA [None]
  - BACK PAIN [None]
  - BACTERIAL INFECTION [None]
  - BLADDER PAIN [None]
  - BLOOD ALKALINE PHOSPHATASE INCREASED [None]
  - BLOOD PHOSPHORUS INCREASED [None]
  - BLOOD PRESSURE INCREASED [None]
  - CONSTIPATION [None]
  - DIARRHOEA [None]
  - FAECAL INCONTINENCE [None]
  - GASTRITIS [None]
  - HAEMATOCHEZIA [None]
  - HYPOAESTHESIA [None]
  - HYPOKINESIA [None]
  - IMMUNE SYSTEM DISORDER [None]
  - IRRITABLE BOWEL SYNDROME [None]
  - MEGACOLON [None]
  - NEURALGIA [None]
  - RED BLOOD CELL ABNORMALITY [None]
  - RED CELL DISTRIBUTION WIDTH INCREASED [None]
  - SENSORY DISTURBANCE [None]
  - SEPSIS [None]
  - TREATMENT NONCOMPLIANCE [None]
  - WEIGHT INCREASED [None]
